FAERS Safety Report 19266025 (Version 1)
Quarter: 2021Q2

REPORT INFORMATION
  Report Type: Spontaneous
  Country: JP (occurrence: JP)
  Receive Date: 20210518
  Receipt Date: 20210518
  Transmission Date: 20210717
  Serious: Yes (Other)
  Sender: FDA-Public Use
  Company Number: JP-ORGANON-O2105JPN000082J

PATIENT
  Age: 62 Year
  Sex: Female

DRUGS (2)
  1. ZETIA [Suspect]
     Active Substance: EZETIMIBE
     Dosage: 10 MILLIGRAM, QD
     Route: 048
     Dates: start: 202103, end: 20210427
  2. LIPITOR [Concomitant]
     Active Substance: ATORVASTATIN CALCIUM
     Dosage: UNK
     Route: 048
     Dates: start: 2011, end: 20210427

REACTIONS (4)
  - Gastric ulcer [Unknown]
  - Gastritis [Recovering/Resolving]
  - Abdominal pain upper [Recovering/Resolving]
  - Faeces discoloured [Recovering/Resolving]

NARRATIVE: CASE EVENT DATE: 202104
